FAERS Safety Report 12316865 (Version 1)
Quarter: 2016Q2

REPORT INFORMATION
  Report Type: Spontaneous
  Country: RO (occurrence: RO)
  Receive Date: 20160429
  Receipt Date: 20160429
  Transmission Date: 20160815
  Serious: Yes (Other)
  Sender: FDA-Public Use
  Company Number: RO-SUN PHARMACEUTICAL INDUSTRIES LTD-2016R1-115353

PATIENT
  Age: 47 Year
  Sex: Female

DRUGS (1)
  1. PREDNISONE. [Suspect]
     Active Substance: PREDNISONE
     Indication: INTERSTITIAL LUNG DISEASE
     Dosage: UNK
     Route: 065

REACTIONS (6)
  - Polymyositis [Unknown]
  - Muscular weakness [Unknown]
  - Hepatocellular injury [Unknown]
  - Arthralgia [Unknown]
  - Myalgia [Unknown]
  - Dysstasia [Unknown]
